FAERS Safety Report 8984479 (Version 1)
Quarter: 2012Q4

REPORT INFORMATION
  Report Type: 
  Country: GB (occurrence: GB)
  Receive Date: 20121225
  Receipt Date: 20121225
  Transmission Date: 20130627
  Serious: Yes (Other)
  Sender: FDA-Public Use
  Company Number: GB-SANOFI-AVENTIS-2012SA092383

PATIENT
  Age: 67 Year
  Sex: Male
  Weight: 70.6 kg

DRUGS (8)
  1. CLOPIDOGREL BISULFATE [Suspect]
     Indication: DRUG USE FOR UNKNOWN INDICATION
     Route: 065
  2. ASPIRIN [Concomitant]
     Dates: start: 20120822
  3. CARBOMER [Concomitant]
     Dates: start: 20120822
  4. DIPROBASE CREAM [Concomitant]
     Dates: start: 20120822, end: 20120919
  5. PRAVASTATIN [Concomitant]
     Dates: start: 20120822
  6. RAMIPRIL [Concomitant]
     Dates: start: 20120822
  7. BETAMETHASONE VALERATE [Concomitant]
     Dates: start: 20121011, end: 20121012
  8. ISOSORBIDE MONONITRATE [Concomitant]
     Dates: start: 20121203

REACTIONS (1)
  - Raynaud^s phenomenon [Unknown]
